FAERS Safety Report 10664736 (Version 3)
Quarter: 2015Q4

REPORT INFORMATION
  Report Type: Spontaneous
  Country: US (occurrence: US)
  Receive Date: 20141219
  Receipt Date: 20151130
  Transmission Date: 20160304
  Serious: Yes (Other)
  Sender: FDA-Public Use
  Company Number: US-BAYER-2014-186667

PATIENT
  Age: 24 Year
  Sex: Female

DRUGS (1)
  1. MIRENA [Suspect]
     Active Substance: LEVONORGESTREL
     Indication: CONTRACEPTION
     Dosage: 20 MCG/24HR, CONT
     Route: 015
     Dates: start: 20090121, end: 20120131

REACTIONS (5)
  - Back pain [None]
  - Injury [None]
  - Uterine perforation [None]
  - Pain [None]
  - Endometriosis [None]

NARRATIVE: CASE EVENT DATE: 201201
